FAERS Safety Report 10046915 (Version 2)
Quarter: 2014Q2

REPORT INFORMATION
  Report Type: Spontaneous
  Country: NL (occurrence: None)
  Receive Date: 20140327
  Receipt Date: 20140407
  Transmission Date: 20141212
  Serious: Yes (Death, Other)
  Sender: FDA-Public Use
  Company Number: NL-015076

PATIENT
  Age: 76 Year
  Sex: Male

DRUGS (1)
  1. FIRMAGON [Suspect]
     Indication: PROSTATE CANCER
     Route: 058
     Dates: start: 20140225

REACTIONS (4)
  - Arrhythmia [None]
  - Dyspnoea [None]
  - Fatigue [None]
  - Diarrhoea [None]
